FAERS Safety Report 6062156-7 (Version None)
Quarter: 2009Q1

REPORT INFORMATION
  Report Type: 
  Country: None (occurrence: None)
  Receive Date: 20090129
  Receipt Date: 20090129
  Transmission Date: 20090719
  Serious: No
  Sender: FDA-Public Use
  Company Number: None

PATIENT
  Age: 67 Year
  Sex: Female
  Weight: 58.9676 kg

DRUGS (4)
  1. PROPRANOLOL HCL [Suspect]
     Indication: CARDIAC DISORDER
     Dosage: 20 MGS 4X A DAY 4X A DAY
     Dates: start: 20090110, end: 20090113
  2. PROPRANOLOL HCL [Suspect]
     Indication: HYPERTENSION
     Dosage: 20 MGS 4X A DAY 4X A DAY
     Dates: start: 20090110, end: 20090113
  3. PROPRANOLOL HCL [Suspect]
     Indication: CARDIAC DISORDER
     Dosage: 20 MGS 4X A DAY 4X A DAY
     Dates: start: 20090125, end: 20090126
  4. PROPRANOLOL HCL [Suspect]
     Indication: HYPERTENSION
     Dosage: 20 MGS 4X A DAY 4X A DAY
     Dates: start: 20090125, end: 20090126

REACTIONS (3)
  - PRODUCT QUALITY ISSUE [None]
  - PULMONARY CONGESTION [None]
  - SWELLING FACE [None]
